FAERS Safety Report 5456060-2 (Version None)
Quarter: 2007Q3

REPORT INFORMATION
  Report Type: 
  Country: None (occurrence: None)
  Receive Date: 20070918
  Receipt Date: 20070702
  Transmission Date: 20080115
  Serious: Yes (Other)
  Sender: FDA-Public Use
  Company Number: US-ASTRAZENECA-2006UW23730

PATIENT
  Age: 39 Year
  Sex: Male
  Weight: 136.4 kg

DRUGS (9)
  1. SEROQUEL [Suspect]
     Indication: BIPOLAR DISORDER
     Route: 048
  2. SEROQUEL [Suspect]
     Indication: SCHIZOPHRENIA
     Route: 048
  3. SEROQUEL [Suspect]
     Indication: DEPRESSION
     Route: 048
  4. ABILIFY [Concomitant]
     Dates: start: 20070401
  5. GEODON [Concomitant]
     Dates: start: 20041201, end: 20051101
  6. PAXIL [Concomitant]
     Dates: start: 20041201, end: 20051101
  7. ATIVAN [Concomitant]
     Dates: start: 20041201, end: 20051101
  8. XANAX [Concomitant]
     Dates: start: 20041201, end: 20051101
  9. DEPAKOTE [Concomitant]
     Dates: start: 20041201, end: 20051101

REACTIONS (2)
  - DIABETES MELLITUS [None]
  - KETOACIDOSIS [None]
